FAERS Safety Report 23627589 (Version 1)
Quarter: 2024Q1

REPORT INFORMATION
  Report Type: Spontaneous
  Country: AU (occurrence: AU)
  Receive Date: 20240313
  Receipt Date: 20240313
  Transmission Date: 20240410
  Serious: Yes (Other)
  Sender: FDA-Public Use
  Company Number: AU-TEVA-VS-3167105

PATIENT
  Sex: Male

DRUGS (2)
  1. DESVENLAFAXINE [Suspect]
     Active Substance: DESVENLAFAXINE
     Indication: Depression
     Route: 065
     Dates: start: 20180704
  2. TRAMADOL [Suspect]
     Active Substance: TRAMADOL\TRAMADOL HYDROCHLORIDE
     Indication: Pain
     Route: 065
     Dates: start: 2016

REACTIONS (6)
  - Mental impairment [Unknown]
  - Substance abuse [Unknown]
  - Substance dependence [Unknown]
  - Substance-induced psychotic disorder [Unknown]
  - Drug withdrawal syndrome [Unknown]
  - Homicide [Unknown]

NARRATIVE: CASE EVENT DATE: 20180601
